FAERS Safety Report 9271260 (Version 2)
Quarter: 2015Q2

REPORT INFORMATION
  Report Type: Spontaneous
  Country: US (occurrence: US)
  Receive Date: 20130506
  Receipt Date: 20150618
  Transmission Date: 20150821
  Serious: Yes (Congenital Anomaly, Other)
  Sender: FDA-Public Use
  Company Number: US-ELI_LILLY_AND_COMPANY-US201304008031

PATIENT
  Sex: Female

DRUGS (4)
  1. VITAMIN B [Concomitant]
     Active Substance: VITAMIN B
     Dosage: 1 DF, QD
     Route: 064
  2. PROZAC [Suspect]
     Active Substance: FLUOXETINE HYDROCHLORIDE
     Indication: PRODUCT USED FOR UNKNOWN INDICATION
     Dosage: 1 DF, UNKNOWN
     Route: 064
  3. IBUPROFEN. [Concomitant]
     Active Substance: IBUPROFEN
     Dosage: 1 DF, UNKNOWN
     Route: 064
  4. FOLIC ACID. [Concomitant]
     Active Substance: FOLIC ACID
     Dosage: 1 DF, QD
     Route: 064

REACTIONS (6)
  - Transient tachypnoea of the newborn [Recovered/Resolved]
  - Meconium in amniotic fluid [Recovered/Resolved]
  - Foetal exposure during pregnancy [Recovered/Resolved]
  - Hypoglycaemia [Unknown]
  - Foetal heart rate deceleration abnormality [Recovered/Resolved]
  - Cleft palate [Unknown]
